FAERS Safety Report 8531319-0 (Version None)
Quarter: 2012Q3

REPORT INFORMATION
  Report Type: 
  Country: None (occurrence: None)
  Receive Date: 20120723
  Receipt Date: 20120713
  Transmission Date: 20120928
  Serious: Yes (Hospitalization, Other)
  Sender: FDA-Public Use
  Company Number: IT-ASTRAZENECA-2012SE49250

PATIENT
  Age: 15381 Day
  Sex: Female

DRUGS (3)
  1. COCAINE [Suspect]
     Route: 065
  2. SEROQUEL [Suspect]
     Indication: INTENTIONAL OVERDOSE
     Route: 048
     Dates: start: 20120711, end: 20120711
  3. ALCOHOL [Suspect]
     Route: 065

REACTIONS (3)
  - CONVULSION [None]
  - SOPOR [None]
  - PSYCHOMOTOR HYPERACTIVITY [None]
